FAERS Safety Report 21445458 (Version 1)
Quarter: 2022Q4

REPORT INFORMATION
  Report Type: Spontaneous
  Country: CA (occurrence: CA)
  Receive Date: 20221012
  Receipt Date: 20221012
  Transmission Date: 20230113
  Serious: Yes (Hospitalization, Other)
  Sender: FDA-Public Use
  Company Number: CA-MLMSERVICE-20220926-3817670-1

PATIENT

DRUGS (22)
  1. PROPRANOLOL [Suspect]
     Active Substance: PROPRANOLOL HYDROCHLORIDE
     Indication: Product used for unknown indication
     Dosage: 10 MG, TID (3/DAY)
     Route: 065
     Dates: start: 2016
  2. PREGABALIN [Concomitant]
     Active Substance: PREGABALIN
     Indication: Anxiety
     Dosage: 150 MG ONCE DAILY
     Route: 065
  3. ATORVASTATIN [Concomitant]
     Active Substance: ATORVASTATIN
     Indication: Dressler^s syndrome
     Dosage: 80 MG ONCE DAILY
     Route: 065
     Dates: start: 2010
  4. ASENAPINE [Concomitant]
     Active Substance: ASENAPINE
     Indication: Antipsychotic therapy
     Dosage: 5 MG, QD (1/DAY), QHS AT BEDTIME
     Route: 060
     Dates: start: 2019
  5. RISPERIDONE [Concomitant]
     Active Substance: RISPERIDONE
     Indication: Antipsychotic therapy
     Dosage: 4 MG ONCE DAILY
     Route: 065
     Dates: start: 2020
  6. ZOPICLONE [Concomitant]
     Active Substance: ZOPICLONE
     Indication: Insomnia
     Dosage: 7.5 MG, QD (1/DAY), QHS AT BEDTIME
     Route: 065
  7. CLONAZEPAM [Concomitant]
     Active Substance: CLONAZEPAM
     Indication: Anxiety
     Dosage: 0.25 MG, BID (2/DAY)
     Route: 065
  8. CLONAZEPAM [Concomitant]
     Active Substance: CLONAZEPAM
     Dosage: 0.5 MG, QD (1/DAY), QHS AT BEDTIME
     Route: 065
  9. CLONAZEPAM [Concomitant]
     Active Substance: CLONAZEPAM
     Dosage: 0.25 MG EVERY OTHER DAY PRN
     Route: 065
  10. RAMIPRIL [Concomitant]
     Active Substance: RAMIPRIL
     Indication: Dressler^s syndrome
     Dosage: 10 MG, QD (1/DAY)
     Route: 065
     Dates: start: 2010
  11. ASPIRIN [Concomitant]
     Active Substance: ASPIRIN
     Indication: Dressler^s syndrome
     Dosage: 81 MG, QD (1/DAY),QAM IN THE MORNING
     Route: 065
     Dates: start: 2010
  12. LITHIUM [Concomitant]
     Active Substance: LITHIUM
     Indication: Affective disorder
     Dosage: 450 MG, BID (2/DAY)
     Route: 065
  13. LAMOTRIGINE [Concomitant]
     Active Substance: LAMOTRIGINE
     Indication: Affective disorder
     Dosage: 300 MG ONCE DAILY
     Route: 065
  14. CANAGLIFLOZIN [Concomitant]
     Active Substance: CANAGLIFLOZIN
     Indication: Diabetes mellitus
     Dosage: 100 MG, QD (1/DAY), QAM IN THE MORNING
     Route: 065
  15. VENLAFAXINE [Concomitant]
     Active Substance: VENLAFAXINE HYDROCHLORIDE
     Indication: Anxiety
     Dosage: 112.5 MG ONCE DAILY
     Route: 065
  16. VENLAFAXINE [Concomitant]
     Active Substance: VENLAFAXINE HYDROCHLORIDE
     Indication: Depression
  17. METFORMIN [Concomitant]
     Active Substance: METFORMIN HYDROCHLORIDE
     Indication: Diabetes mellitus
     Dosage: 500 MG, BID (2/DAY)
     Route: 065
  18. NITROGLYCERIN [Concomitant]
     Active Substance: NITROGLYCERIN
     Indication: Chest pain
     Dosage: 0.4 MG, PRN
     Route: 065
     Dates: start: 2010
  19. NITROGLYCERIN [Concomitant]
     Active Substance: NITROGLYCERIN
     Indication: Dressler^s syndrome
  20. MINERALS\VITAMINS [Concomitant]
     Active Substance: MINERALS\VITAMINS
     Indication: Supplementation therapy
     Dosage: ONCE DAILY
     Route: 065
  21. QUETIAPINE [Concomitant]
     Active Substance: QUETIAPINE
     Indication: Sleep disorder
     Dosage: 75 MG QHS
     Route: 065
     Dates: start: 2020
  22. OLANZAPINE [Concomitant]
     Active Substance: OLANZAPINE
     Indication: Antipsychotic therapy
     Dosage: 15 MG QHS
     Route: 065
     Dates: start: 2020

REACTIONS (6)
  - Depression [Recovering/Resolving]
  - Hallucination, auditory [Recovering/Resolving]
  - Hallucination, visual [Recovering/Resolving]
  - Psychotic disorder [Recovered/Resolved]
  - Product use issue [Unknown]
  - Off label use [Unknown]
